FAERS Safety Report 6193287-9 (Version None)
Quarter: 2009Q2

REPORT INFORMATION
  Report Type: 
  Country: None (occurrence: None)
  Receive Date: 20090518
  Receipt Date: 20090511
  Transmission Date: 20091009
  Serious: No
  Sender: FDA-Public Use
  Company Number: US-B.I. PHARMACEUTICALS,INC./RIDGEFIELD-2009-BP-05348BP

PATIENT
  Sex: Female

DRUGS (13)
  1. AGGRENOX [Suspect]
     Indication: VASCULAR CALCIFICATION
     Route: 048
     Dates: start: 20090301, end: 20090301
  2. AGGRENOX [Suspect]
     Indication: CARDIAC DISORDER
  3. AGGRENOX [Suspect]
     Indication: ANTICOAGULANT THERAPY
  4. TYLENOL [Concomitant]
     Indication: SPINAL COLUMN STENOSIS
  5. TYLENOL [Concomitant]
     Indication: OSTEOPOROSIS
  6. TYLENOL [Concomitant]
     Indication: MIGRAINE
  7. CORTISONE SHOTS [Concomitant]
     Indication: SPINAL COLUMN STENOSIS
  8. BONIVA [Concomitant]
     Indication: OSTEOPOROSIS
     Route: 042
  9. PROPRANOLOL [Concomitant]
     Indication: MIGRAINE
     Dosage: 120MG
  10. PLAVIX [Concomitant]
  11. MECLIZINE [Concomitant]
  12. LEVOXYL [Concomitant]
  13. ASPIRIN [Concomitant]

REACTIONS (4)
  - ABDOMINAL PAIN UPPER [None]
  - HEADACHE [None]
  - PAIN [None]
  - PAIN IN EXTREMITY [None]
